FAERS Safety Report 7717542-3 (Version None)
Quarter: 2011Q3

REPORT INFORMATION
  Report Type: 
  Country: None (occurrence: None)
  Receive Date: 20110830
  Receipt Date: 20110817
  Transmission Date: 20111222
  Serious: Yes (Death, Hospitalization, Other)
  Sender: FDA-Public Use
  Company Number: BE-ELI_LILLY_AND_COMPANY-BE201102001088

PATIENT
  Sex: Female

DRUGS (5)
  1. ALCOHOL [Concomitant]
  2. FORTEO [Suspect]
     Dosage: UNK, UNKNOWN
     Route: 065
     Dates: start: 20100830
  3. MS CONTIN [Concomitant]
     Dosage: 60 MG, 2/D
     Route: 065
  4. MIACALCIN [Concomitant]
     Dosage: UNK, UNKNOWN
     Route: 065
  5. METHOTREXATE [Concomitant]
     Dosage: UNK, UNKNOWN
     Route: 065

REACTIONS (10)
  - ALCOHOL ABUSE [None]
  - CANDIDIASIS [None]
  - FEMORAL NECK FRACTURE [None]
  - HEPATIC ENCEPHALOPATHY [None]
  - LIVER FUNCTION TEST ABNORMAL [None]
  - DRUG ABUSE [None]
  - GENERAL PHYSICAL HEALTH DETERIORATION [None]
  - ACCIDENT [None]
  - PANCYTOPENIA [None]
  - LIGAMENT RUPTURE [None]
